FAERS Safety Report 20716915 (Version 1)
Quarter: 2022Q2

REPORT INFORMATION
  Report Type: Report from Study
  Country: US (occurrence: US)
  Receive Date: 20220416
  Receipt Date: 20220416
  Transmission Date: 20220721
  Serious: Yes (Other)
  Sender: FDA-Public Use
  Company Number: US-JNJFOC-20220411582

PATIENT

DRUGS (10)
  1. HALDOL DECANOATE [Suspect]
     Active Substance: HALOPERIDOL DECANOATE
     Indication: Agitation
     Route: 030
  2. HALDOL DECANOATE [Suspect]
     Active Substance: HALOPERIDOL DECANOATE
     Route: 030
  3. HALDOL DECANOATE [Suspect]
     Active Substance: HALOPERIDOL DECANOATE
     Route: 042
  4. HALDOL DECANOATE [Suspect]
     Active Substance: HALOPERIDOL DECANOATE
     Route: 042
  5. ZIPRASIDONE [Suspect]
     Active Substance: ZIPRASIDONE
     Indication: Agitation
     Route: 030
  6. ZIPRASIDONE [Suspect]
     Active Substance: ZIPRASIDONE
     Route: 030
  7. DIPHENHYDRAMINE HYDROCHLORIDE [Concomitant]
     Active Substance: DIPHENHYDRAMINE HYDROCHLORIDE
     Route: 065
  8. LORAZEPAM [Concomitant]
     Active Substance: LORAZEPAM
  9. MIDAZOLAM [Concomitant]
     Active Substance: MIDAZOLAM
  10. BENZTROPINE [Concomitant]
     Active Substance: BENZTROPINE

REACTIONS (4)
  - Hypoxia [Unknown]
  - Endotracheal intubation [Unknown]
  - Product use issue [Unknown]
  - Off label use [Unknown]
